FAERS Safety Report 22084385 (Version 3)
Quarter: 2023Q1

REPORT INFORMATION
  Report Type: Report from Study
  Country: US (occurrence: US)
  Receive Date: 20230310
  Receipt Date: 20230318
  Transmission Date: 20230418
  Serious: Yes (Other)
  Sender: FDA-Public Use
  Company Number: US-002147023-NVSC2023US052645

PATIENT
  Age: 59 Year
  Sex: Male

DRUGS (2)
  1. ENTRESTO [Suspect]
     Active Substance: SACUBITRIL\VALSARTAN
     Indication: Cardiac failure
     Dosage: 1 DOSAGE FORM, BID (49/51 MG)
     Route: 048
     Dates: start: 20230105
  2. ENTRESTO [Suspect]
     Active Substance: SACUBITRIL\VALSARTAN
     Dosage: 1 DOSAGE FORM, BID (97/103 MG)
     Route: 048

REACTIONS (3)
  - Coronary artery stenosis [Not Recovered/Not Resolved]
  - Dyspnoea exertional [Not Recovered/Not Resolved]
  - Orthopnoea [Recovering/Resolving]

NARRATIVE: CASE EVENT DATE: 20230303
